FAERS Safety Report 6048845-9 (Version None)
Quarter: 2009Q1

REPORT INFORMATION
  Report Type: 
  Country: None (occurrence: None)
  Receive Date: 20090121
  Receipt Date: 20080819
  Transmission Date: 20090719
  Serious: Yes (Other)
  Sender: FDA-Public Use
  Company Number: US-WYE-H05640908

PATIENT
  Age: 45 Year
  Sex: Female
  Weight: 65.83 kg

DRUGS (4)
  1. PREMPRO [Suspect]
     Dosage: 0.625 MG/ 2.5 MG DAILY, ORAL
     Route: 048
     Dates: start: 19980801
  2. ATENOLOL [Concomitant]
  3. VITAMIN B (VITAMIN B) [Concomitant]
  4. CALCIUM (CALCIUM) [Concomitant]

REACTIONS (3)
  - DRUG INEFFECTIVE [None]
  - HYPERTENSION [None]
  - MOOD SWINGS [None]
